FAERS Safety Report 19982958 (Version 1)
Quarter: 2021Q4

REPORT INFORMATION
  Report Type: Spontaneous
  Country: US (occurrence: US)
  Receive Date: 20211021
  Receipt Date: 20211021
  Transmission Date: 20220304
  Serious: No
  Sender: FDA-Public Use
  Company Number: US-SANOFI-00816631

PATIENT

DRUGS (1)
  1. JEVTANA [Suspect]
     Active Substance: CABAZITAXEL
     Dosage: UNK (DRUG STRUCTURE DOSAGE : N/A DRUG INTERVAL DOSAGE : N/A)

REACTIONS (1)
  - Product storage error [Unknown]
